FAERS Safety Report 8588562-4 (Version None)
Quarter: 2012Q3

REPORT INFORMATION
  Report Type: 
  Country: None (occurrence: None)
  Receive Date: 20120813
  Receipt Date: 20120801
  Transmission Date: 20120928
  Serious: Yes (Hospitalization)
  Sender: FDA-Public Use
  Company Number: US-NOVOPROD-357372

PATIENT
  Age: 74 Year
  Sex: Female

DRUGS (4)
  1. LEVEMIR [Suspect]
     Dosage: 15 U, QD
     Route: 058
     Dates: start: 20120726, end: 20120726
  2. LEVEMIR [Suspect]
     Indication: TYPE 2 DIABETES MELLITUS
     Dosage: 12 U, QD
     Route: 058
     Dates: start: 20120725, end: 20120725
  3. LEVEMIR [Suspect]
     Dosage: 22 U, QD
     Route: 058
     Dates: start: 20120726
  4. TOPROL-XL [Concomitant]
     Indication: HYPERTENSION
     Route: 048

REACTIONS (5)
  - DIZZINESS [None]
  - CARDIAC DISORDER [None]
  - BLOOD GLUCOSE INCREASED [None]
  - GAIT DISTURBANCE [None]
  - ENZYME ABNORMALITY [None]
